FAERS Safety Report 4426450-5 (Version None)
Quarter: 2004Q3

REPORT INFORMATION
  Report Type: 
  Country: None (occurrence: None)
  Receive Date: 20040815
  Receipt Date: 20040810
  Transmission Date: 20050211
  Serious: Yes (Hospitalization)
  Sender: FDA-Public Use
  Company Number: HK-MERCK-0408HKG00007

PATIENT

DRUGS (1)
  1. INVANZ [Suspect]
     Route: 051

REACTIONS (1)
  - BLOOD SODIUM INCREASED [None]
